FAERS Safety Report 5474810-6 (Version None)
Quarter: 2007Q3

REPORT INFORMATION
  Report Type: 
  Country: None (occurrence: None)
  Receive Date: 20070927
  Receipt Date: 20070927
  Transmission Date: 20080115
  Serious: Yes (Hospitalization)
  Sender: FDA-Public Use
  Company Number: None

PATIENT
  Age: 52 Year
  Sex: Male

DRUGS (11)
  1. WARFARIN SODIUM [Suspect]
     Indication: ATRIAL FIBRILLATION
     Dosage: PO
     Route: 048
  2. ASPIRIN [Suspect]
     Dosage: PO
     Route: 048
  3. PLETAL [Concomitant]
  4. COREG [Concomitant]
  5. GLIPIZIDE [Concomitant]
  6. LASIX [Concomitant]
  7. LISINOPRIL [Concomitant]
  8. SORBITOL [Concomitant]
  9. NEPHROCAPS [Concomitant]
  10. XANAX [Concomitant]
  11. TUMS [Concomitant]

REACTIONS (6)
  - COAGULOPATHY [None]
  - FALL [None]
  - FATIGUE [None]
  - HEMIPARESIS [None]
  - INTERNATIONAL NORMALISED RATIO INCREASED [None]
  - SUBDURAL HAEMATOMA [None]
